FAERS Safety Report 9307203 (Version 2)
Quarter: 2013Q2

REPORT INFORMATION
  Report Type: Spontaneous
  Country: US (occurrence: US)
  Receive Date: 20130524
  Receipt Date: 20130625
  Transmission Date: 20140414
  Serious: Yes (Life-Threatening, Hospitalization, Disabling)
  Sender: FDA-Public Use
  Company Number: US-009507513-1305USA012731

PATIENT
  Age: 53 Year
  Sex: Male

DRUGS (4)
  1. NOXAFIL [Suspect]
     Indication: FUNGAL INFECTION
     Dosage: 200 MG, Q6H
     Route: 048
     Dates: start: 20130117
  2. AMBISOME [Concomitant]
     Dosage: UNK
  3. PROTONIX [Concomitant]
     Dosage: UNK
     Dates: end: 2013
  4. OMEPRAZOLE [Concomitant]
     Dosage: UNK
     Dates: end: 2013

REACTIONS (2)
  - Bone marrow transplant [Not Recovered/Not Resolved]
  - Oesophagitis [Not Recovered/Not Resolved]
